FAERS Safety Report 6840029-7 (Version None)
Quarter: 2010Q2

REPORT INFORMATION
  Report Type: 
  Country: None (occurrence: None)
  Receive Date: 20100629
  Receipt Date: 20100304
  Transmission Date: 20101027
  Serious: No
  Sender: FDA-Public Use
  Company Number: US-WYE-H13989110

PATIENT
  Age: 56 Year
  Sex: Female
  Weight: 61.29 kg

DRUGS (5)
  1. PRISTIQ [Suspect]
     Indication: ANXIETY
     Dosage: 50 MG 1X PER 1 DAY, ORAL 50 MG 1X PER 1 DAY, ORAL
     Route: 048
     Dates: start: 20091101, end: 20090101
  2. PRISTIQ [Suspect]
     Indication: ANXIETY
     Dosage: 50 MG 1X PER 1 DAY, ORAL 50 MG 1X PER 1 DAY, ORAL
     Route: 048
     Dates: start: 20100101, end: 20100101
  3. EXFORGE [Concomitant]
  4. THYROID TAB [Concomitant]
  5. XANAX [Concomitant]

REACTIONS (4)
  - HEADACHE [None]
  - HYPERACUSIS [None]
  - PHOTOPHOBIA [None]
  - VISION BLURRED [None]
